FAERS Safety Report 5677844-1 (Version None)
Quarter: 2008Q1

REPORT INFORMATION
  Report Type: 
  Country: None (occurrence: None)
  Receive Date: 20080319
  Receipt Date: 20080311
  Transmission Date: 20080703
  Serious: Yes (Hospitalization)
  Sender: FDA-Public Use
  Company Number: S07-USA-06161-01

PATIENT
  Age: 21 Year
  Sex: Female

DRUGS (12)
  1. LEXAPRO [Suspect]
     Indication: ANXIETY
     Dosage: 20 MG QD PO
     Route: 048
     Dates: start: 20061201, end: 20071129
  2. LEXAPRO [Suspect]
     Indication: DEPRESSION
     Dosage: 20 MG QD PO
     Route: 048
     Dates: start: 20061201, end: 20071129
  3. LEXAPRO [Suspect]
     Indication: EATING DISORDER
     Dosage: 20 MG QD PO
     Route: 048
     Dates: start: 20061201, end: 20071129
  4. LEXAPRO [Suspect]
     Indication: ANXIETY
     Dosage: 10 MG QD PO
     Route: 048
     Dates: start: 20071130, end: 20070101
  5. LEXAPRO [Suspect]
     Indication: DEPRESSION
     Dosage: 10 MG QD PO
     Route: 048
     Dates: start: 20071130, end: 20070101
  6. LEXAPRO [Suspect]
     Indication: EATING DISORDER
     Dosage: 10 MG QD PO
     Route: 048
     Dates: start: 20071130, end: 20070101
  7. LEXAPRO [Suspect]
     Indication: ANXIETY
     Dosage: 5 MG QD PO
     Route: 048
     Dates: start: 20071201
  8. LEXAPRO [Suspect]
     Indication: DEPRESSION
     Dosage: 5 MG QD PO
     Route: 048
     Dates: start: 20071201
  9. LEXAPRO [Suspect]
     Indication: EATING DISORDER
     Dosage: 5 MG QD PO
     Route: 048
     Dates: start: 20071201
  10. YASMIN [Suspect]
     Indication: CONTRACEPTION
     Dates: end: 20071129
  11. YASMIN [Suspect]
     Indication: CONTRACEPTION
     Dates: start: 20071130
  12. CENTRUM (MULTIVITAMIN) [Concomitant]

REACTIONS (6)
  - CONVULSION [None]
  - DRUG INTERACTION [None]
  - DYSTONIA [None]
  - LOSS OF CONSCIOUSNESS [None]
  - MUSCLE RIGIDITY [None]
  - VOMITING [None]
